FAERS Safety Report 16036793 (Version 1)
Quarter: 2019Q1

REPORT INFORMATION
  Report Type: Spontaneous
  Country: US (occurrence: US)
  Receive Date: 20190305
  Receipt Date: 20190305
  Transmission Date: 20190418
  Serious: No
  Sender: FDA-Public Use
  Company Number: US-IMPAX LABORATORIES, LLC-2018-IPXL-02985

PATIENT
  Age: 76 Year
  Sex: Female
  Weight: 73 kg

DRUGS (8)
  1. RYTARY [Suspect]
     Active Substance: CARBIDOPA\LEVODOPA
     Dosage: 23.75/95 MG FOUR CAPSULES FOUR TIMES DAILY
     Route: 048
     Dates: start: 2018, end: 2018
  2. MIRAPEX [Concomitant]
     Active Substance: PRAMIPEXOLE DIHYDROCHLORIDE
     Indication: PRODUCT USED FOR UNKNOWN INDICATION
     Dosage: UNK, THREE TIMES DAILY
     Route: 048
  3. XANAX [Concomitant]
     Active Substance: ALPRAZOLAM
     Indication: PRODUCT USED FOR UNKNOWN INDICATION
     Dosage: UNK, THREE TIMES DAILY
     Route: 048
  4. RYTARY [Suspect]
     Active Substance: CARBIDOPA\LEVODOPA
     Indication: PARKINSON^S DISEASE
     Dosage: 23.75/95 MG, THREE CAPSULES, FOUR TIMES DAILY
     Route: 048
     Dates: start: 20180725, end: 2018
  5. TRAZODONE [Concomitant]
     Active Substance: TRAZODONE HYDROCHLORIDE
     Indication: PRODUCT USED FOR UNKNOWN INDICATION
     Dosage: UNK, ONCE DAILY
     Route: 048
  6. RYTARY [Suspect]
     Active Substance: CARBIDOPA\LEVODOPA
     Dosage: 48.75/195 MG, 2 CAPSULES FOUR TIMES A DAY
     Route: 048
     Dates: start: 2018
  7. LEVOTHYROXINE. [Concomitant]
     Active Substance: LEVOTHYROXINE
     Indication: PRODUCT USED FOR UNKNOWN INDICATION
     Dosage: 50 ?G, ONCE DAILY
     Route: 048
  8. LEXAPRO [Concomitant]
     Active Substance: ESCITALOPRAM OXALATE
     Indication: PRODUCT USED FOR UNKNOWN INDICATION
     Dosage: UNK
     Route: 048

REACTIONS (16)
  - Back pain [Unknown]
  - Dizziness [Unknown]
  - Labelled drug-food interaction medication error [Unknown]
  - Dysstasia [Not Recovered/Not Resolved]
  - Muscle rigidity [Not Recovered/Not Resolved]
  - Feeding disorder [Unknown]
  - Asthenia [Recovering/Resolving]
  - Somnolence [Unknown]
  - Therapeutic response shortened [Unknown]
  - Vertigo CNS origin [Unknown]
  - Feeling abnormal [Recovering/Resolving]
  - Dysgraphia [Not Recovered/Not Resolved]
  - Tremor [Recovering/Resolving]
  - Gait disturbance [Recovering/Resolving]
  - Balance disorder [Not Recovered/Not Resolved]
  - Diplopia [Unknown]

NARRATIVE: CASE EVENT DATE: 2018
